FAERS Safety Report 6153378-5 (Version None)
Quarter: 2009Q2

REPORT INFORMATION
  Report Type: 
  Country: None (occurrence: None)
  Receive Date: 20090413
  Receipt Date: 20090409
  Transmission Date: 20091009
  Serious: Yes (Other)
  Sender: FDA-Public Use
  Company Number: BE-BRISTOL-MYERS SQUIBB COMPANY-14580732

PATIENT
  Age: 5 Decade
  Sex: Male

DRUGS (4)
  1. REYATAZ [Suspect]
     Indication: ANTIRETROVIRAL THERAPY
  2. RITONAVIR [Suspect]
     Indication: ANTIRETROVIRAL THERAPY
  3. EPIVIR [Suspect]
     Indication: ANTIRETROVIRAL THERAPY
  4. VIREAD [Suspect]
     Indication: ANTIRETROVIRAL THERAPY

REACTIONS (2)
  - COGNITIVE DISORDER [None]
  - DRUG INEFFECTIVE [None]
